FAERS Safety Report 9767223 (Version 1)
Quarter: 2013Q4

REPORT INFORMATION
  Report Type: Spontaneous
  Country: DE (occurrence: None)
  Receive Date: 20131213
  Receipt Date: 20131213
  Transmission Date: 20140711
  Serious: Yes (Other)
  Sender: FDA-Public Use
  Company Number: 2013DE0482

PATIENT
  Age: 54 Year
  Sex: Male

DRUGS (1)
  1. KEPIVANCE [Suspect]
     Dates: start: 20120421

REACTIONS (4)
  - Salivary hypersecretion [None]
  - Paraesthesia oral [None]
  - Ageusia [None]
  - Speech disorder [None]
